FAERS Safety Report 26077266 (Version 1)
Quarter: 2025Q4

REPORT INFORMATION
  Report Type: Spontaneous
  Country: EU (occurrence: EU)
  Receive Date: 20251121
  Receipt Date: 20251121
  Transmission Date: 20260119
  Serious: Yes (Life-Threatening, Hospitalization)
  Sender: INTERCHEM
  Company Number: EU-HQ SPECIALTY-PL-2025INT000088

PATIENT
  Age: 68 Year
  Sex: Male
  Weight: 130 kg

DRUGS (5)
  1. DEXMEDETOMIDINE HYDROCHLORIDE [Suspect]
     Active Substance: DEXMEDETOMIDINE HYDROCHLORIDE
     Indication: Product used for unknown indication
     Dosage: 1 MG, UNK
     Route: 065
     Dates: start: 20230509
  2. METAMIZOLE [Suspect]
     Active Substance: METAMIZOLE
     Indication: Product used for unknown indication
     Dosage: 2.5 G, W 100 ML NACL 9 PERCENT
     Route: 065
     Dates: start: 20230511, end: 20230511
  3. FUROSEMIDE [Suspect]
     Active Substance: FUROSEMIDE
     Indication: Product used for unknown indication
     Dosage: 60 MG/ML, QD
     Route: 065
     Dates: start: 20230509
  4. ENOXAPARIN SODIUM [Concomitant]
     Active Substance: ENOXAPARIN SODIUM
     Indication: Product used for unknown indication
     Dosage: 0.4 ML, UNK
     Route: 065
     Dates: start: 20230509
  5. OMEPRAZOLE [Concomitant]
     Active Substance: OMEPRAZOLE
     Indication: Product used for unknown indication
     Dosage: 0.04 UNK, UNK
     Route: 065
     Dates: start: 20230510

REACTIONS (5)
  - Anaphylactic shock [Recovered/Resolved]
  - Hypothermia [Recovered/Resolved]
  - Loss of consciousness [Recovered/Resolved]
  - Bradycardia [Recovered/Resolved]
  - Rash [Recovered/Resolved]

NARRATIVE: CASE EVENT DATE: 20230511
